FAERS Safety Report 5255789-9 (Version None)
Quarter: 2007Q1

REPORT INFORMATION
  Report Type: 
  Country: None (occurrence: None)
  Receive Date: 20070228
  Receipt Date: 20070214
  Transmission Date: 20070707
  Serious: Yes (Disabling)
  Sender: FDA-Public Use
  Company Number: DK-1160586

PATIENT
  Age: 30 Year
  Sex: Female

DRUGS (1)
  1. CIPRO HC [Suspect]
     Dosage: 3 GTTS IN RIGHT EAR AURICULAR (OTIC)
     Route: 001
     Dates: start: 20070121, end: 20070128

REACTIONS (2)
  - HEARING DISABILITY [None]
  - HYPOACUSIS [None]
